FAERS Safety Report 6920375-9 (Version None)
Quarter: 2010Q3

REPORT INFORMATION
  Report Type: 
  Country: None (occurrence: None)
  Receive Date: 20100804
  Receipt Date: 20100607
  Transmission Date: 20110219
  Serious: No
  Sender: FDA-Public Use
  Company Number: 2010-00472

PATIENT
  Age: 67 Year
  Sex: Female
  Weight: 61.2356 kg

DRUGS (9)
  1. ZICAM COLD REMEDY NASAL GEL [Suspect]
     Dates: start: 20090101
  2. ZICAM COLD REMEDY NASAL GEL [Suspect]
     Dates: start: 20090101
  3. ZICAM COLD REMEDY NASAL GEL [Suspect]
     Dates: start: 20090101
  4. LIPITOR [Concomitant]
  5. NORVASC [Concomitant]
  6. ATENOLOL [Concomitant]
  7. RELAFEN [Concomitant]
  8. DITROPAN XL [Concomitant]
  9. PRILOSEC [Concomitant]

REACTIONS (2)
  - AGEUSIA [None]
  - ANOSMIA [None]
